FAERS Safety Report 4575497-7 (Version None)
Quarter: 2005Q1

REPORT INFORMATION
  Report Type: 
  Country: None (occurrence: None)
  Receive Date: 20050128
  Receipt Date: 20050128
  Transmission Date: 20050727
  Serious: No
  Sender: FDA-Public Use
  Company Number: None

PATIENT
  Age: 76 Year
  Sex: Male
  Weight: 90 kg

DRUGS (2)
  1. XIGRIS [Suspect]
     Indication: POST PROCEDURAL COMPLICATION
     Dosage: 24 MCG/KG/HR    INTRAVENOU
     Route: 042
     Dates: start: 20041107, end: 20041111
  2. XIGRIS [Suspect]
     Indication: SEPSIS SYNDROME
     Dosage: 24 MCG/KG/HR    INTRAVENOU
     Route: 042
     Dates: start: 20041107, end: 20041111

REACTIONS (2)
  - HAEMOGLOBIN DECREASED [None]
  - UPPER GASTROINTESTINAL HAEMORRHAGE [None]
